FAERS Safety Report 6091027-5 (Version None)
Quarter: 2009Q1

REPORT INFORMATION
  Report Type: 
  Country: None (occurrence: None)
  Receive Date: 20090225
  Receipt Date: 20090216
  Transmission Date: 20090719
  Serious: Yes (Hospitalization, Other)
  Sender: FDA-Public Use
  Company Number: PHHY2009FR05650

PATIENT
  Sex: Male

DRUGS (18)
  1. SANDIMMUNE [Interacting]
     Indication: PANCREAS TRANSPLANT REJECTION
     Dosage: 100 MG
     Dates: start: 19990101
  2. SANDIMMUNE [Interacting]
     Dosage: 50 MG, QD
     Route: 048
     Dates: end: 20081024
  3. COLCHIMAX [Interacting]
     Dosage: UNK
     Route: 048
     Dates: start: 20081014
  4. FOZITEC [Suspect]
     Dosage: 5 MG, QD
     Route: 048
     Dates: start: 20070308, end: 20081024
  5. CIFLOX [Suspect]
     Dosage: 250 MG
     Route: 048
     Dates: start: 20081013
  6. KETOPROFEN [Suspect]
     Dosage: UNK
     Route: 048
     Dates: start: 20081013, end: 20081024
  7. GLUCOPHAGE [Concomitant]
  8. NOVONORM [Concomitant]
  9. AZANTAC [Concomitant]
  10. CORTANCYL [Concomitant]
  11. DEPAKENE [Concomitant]
  12. TRILEPTAL [Concomitant]
  13. TAHOR [Concomitant]
  14. IMUREL [Concomitant]
  15. CLAMOXYL [Concomitant]
     Dosage: 2 G/DAY
     Dates: start: 20081007
  16. TANGANIL [Concomitant]
  17. VOGALENE [Concomitant]
  18. KAYEXALATE [Concomitant]
     Indication: HYPERKALAEMIA

REACTIONS (16)
  - BLOOD CREATININE INCREASED [None]
  - BLOOD UREA INCREASED [None]
  - CULTURE URINE POSITIVE [None]
  - GENERAL PHYSICAL HEALTH DETERIORATION [None]
  - HYPERKALAEMIA [None]
  - HYPERTENSION [None]
  - HYPERTHERMIA [None]
  - IMPAIRED WORK ABILITY [None]
  - MALAISE [None]
  - MUSCULAR WEAKNESS [None]
  - NAUSEA [None]
  - PAIN IN EXTREMITY [None]
  - RENAL FAILURE CHRONIC [None]
  - STREPTOCOCCAL INFECTION [None]
  - VOMITING [None]
  - WEIGHT DECREASED [None]
